FAERS Safety Report 7430880-7 (Version None)
Quarter: 2011Q2

REPORT INFORMATION
  Report Type: 
  Country: None (occurrence: None)
  Receive Date: 20110421
  Receipt Date: 20110418
  Transmission Date: 20111010
  Serious: Yes (Other)
  Sender: FDA-Public Use
  Company Number: CA-BRISTOL-MYERS SQUIBB COMPANY-15618457

PATIENT
  Age: 12 Year
  Sex: Male

DRUGS (3)
  1. ABILIFY [Suspect]
     Indication: ATTENTION DEFICIT/HYPERACTIVITY DISORDER
     Dosage: STARTED ON 2 MG
     Dates: start: 20110121
  2. LEVOTHYROXINE SODIUM [Suspect]
     Dates: start: 20100101
  3. TENEX [Suspect]
     Dates: start: 20081016

REACTIONS (2)
  - NIGHTMARE [None]
  - HALLUCINATION [None]
